FAERS Safety Report 17533154 (Version 1)
Quarter: 2020Q1

REPORT INFORMATION
  Report Type: Spontaneous
  Country: RU (occurrence: RU)
  Receive Date: 20200312
  Receipt Date: 20200312
  Transmission Date: 20200409
  Serious: Yes (Other)
  Sender: FDA-Public Use
  Company Number: NVSC2020RU068098

PATIENT
  Age: 18 Year
  Sex: Female
  Weight: 48 kg

DRUGS (2)
  1. DEPAKINE [Concomitant]
     Active Substance: VALPROATE SODIUM
     Indication: EPILEPSY
     Dosage: UNK
     Route: 048
     Dates: start: 2016
  2. TRILEPTAL [Suspect]
     Active Substance: OXCARBAZEPINE
     Indication: EPILEPSY
     Dosage: 300 MG, QD
     Route: 048
     Dates: start: 20160101, end: 20200224

REACTIONS (6)
  - Cerebral atrophy [Recovering/Resolving]
  - Encephalopathy [Recovering/Resolving]
  - Neurotoxicity [Recovering/Resolving]
  - Hippocampal sclerosis [Recovering/Resolving]
  - Partial seizures [Recovering/Resolving]
  - Altered state of consciousness [Recovering/Resolving]
